FAERS Safety Report 15581881 (Version 1)
Quarter: 2018Q4

REPORT INFORMATION
  Report Type: Spontaneous
  Country: US (occurrence: US)
  Receive Date: 20181102
  Receipt Date: 20181102
  Transmission Date: 20190205
  Serious: No
  Sender: FDA-Public Use
  Company Number: US-RADIUS HEALTH INC.-2018US001883

PATIENT
  Age: 76 Year
  Sex: Female

DRUGS (3)
  1. TYMLOS [Suspect]
     Active Substance: ABALOPARATIDE
     Indication: OSTEOPOROSIS POSTMENOPAUSAL
     Dosage: 80 MCG, DAILY
     Route: 058
     Dates: start: 20180711
  2. TYMLOS [Suspect]
     Active Substance: ABALOPARATIDE
     Dosage: 80 MCG, DAILY
     Route: 058
     Dates: start: 201806
  3. ALEVE [Concomitant]
     Active Substance: NAPROXEN SODIUM
     Indication: PRODUCT USED FOR UNKNOWN INDICATION

REACTIONS (9)
  - Injection site discolouration [Unknown]
  - Asthenia [Not Recovered/Not Resolved]
  - Dizziness [Not Recovered/Not Resolved]
  - Pruritus [Not Recovered/Not Resolved]
  - Night sweats [Unknown]
  - Nausea [Not Recovered/Not Resolved]
  - Hot flush [Unknown]
  - Heart rate increased [Not Recovered/Not Resolved]
  - Injection site erythema [Unknown]

NARRATIVE: CASE EVENT DATE: 20180711
